FAERS Safety Report 20136990 (Version 1)
Quarter: 2021Q4

REPORT INFORMATION
  Report Type: Spontaneous
  Country: US (occurrence: US)
  Receive Date: 20211201
  Receipt Date: 20211201
  Transmission Date: 20220303
  Serious: No
  Sender: FDA-Public Use
  Company Number: US-CELGENE-USA-20211107123

PATIENT
  Age: 68 Year
  Sex: Female

DRUGS (2)
  1. REVLIMID [Suspect]
     Active Substance: LENALIDOMIDE
     Indication: B-cell lymphoma
     Route: 048
     Dates: start: 20210922
  2. REVLIMID [Suspect]
     Active Substance: LENALIDOMIDE
     Indication: Diffuse large B-cell lymphoma

REACTIONS (1)
  - Rash pruritic [Unknown]

NARRATIVE: CASE EVENT DATE: 20211001
